FAERS Safety Report 6992033-6 (Version None)
Quarter: 2010Q3

REPORT INFORMATION
  Report Type: 
  Country: None (occurrence: None)
  Receive Date: 20100917
  Receipt Date: 20100906
  Transmission Date: 20110219
  Serious: Yes (Hospitalization)
  Sender: FDA-Public Use
  Company Number: TW-PFIZER INC-2010029896

PATIENT
  Age: 70 Year
  Sex: Female
  Weight: 52 kg

DRUGS (5)
  1. SUNITINIB MALATE [Suspect]
     Indication: HEPATIC NEOPLASM MALIGNANT RECURRENT
     Dosage: 25 MG, 1X/DAY
     Route: 048
     Dates: start: 20090505, end: 20100306
  2. HYDROCORTISONE [Concomitant]
     Indication: PALMAR-PLANTAR ERYTHRODYSAESTHESIA SYNDROME
     Dosage: 10 G, 2X/DAY
     Dates: start: 20091214
  3. MEPENZOLATE BROMIDE [Concomitant]
     Indication: DIARRHOEA
     Dosage: 7.5 MG, 4X/DAY
     Dates: start: 20091214
  4. FELODIPINE [Concomitant]
     Indication: HYPERTENSION
     Dosage: 5 MG, 1X/DAY
  5. ALUMINIUM OH GEL, DRIED/MAGNESIUM TRISILICATE [Concomitant]
     Indication: GASTRITIS
     Dosage: 1 ML, 4X/DAY
     Dates: start: 20100208

REACTIONS (1)
  - GASTROENTERITIS [None]
